FAERS Safety Report 9523187 (Version 2)
Quarter: 2013Q3

REPORT INFORMATION
  Report Type: Report from Study
  Country: IE (occurrence: IE)
  Receive Date: 20130913
  Receipt Date: 20130917
  Transmission Date: 20140515
  Serious: Yes (Other)
  Sender: FDA-Public Use
  Company Number: IE-GLAXOSMITHKLINE-B0921646A

PATIENT
  Age: 44 Year
  Sex: Male

DRUGS (5)
  1. VOTRIENT [Suspect]
     Indication: PRODUCT USED FOR UNKNOWN INDICATION
     Dosage: 800MG PER DAY
     Route: 048
     Dates: start: 20130830
  2. EFFEXOR [Concomitant]
  3. DEXAMETHASONE [Concomitant]
  4. LYRICA [Concomitant]
  5. MST CONTIN [Concomitant]

REACTIONS (4)
  - Tumour pain [Recovering/Resolving]
  - Muscle spasms [Recovering/Resolving]
  - Vomiting [Recovering/Resolving]
  - Diarrhoea [Unknown]
